FAERS Safety Report 9820548 (Version 4)
Quarter: 2015Q2

REPORT INFORMATION
  Report Type: Spontaneous
  Country: GB (occurrence: GB)
  Receive Date: 20140116
  Receipt Date: 20150520
  Transmission Date: 20150821
  Serious: Yes (Other)
  Sender: FDA-Public Use
  Company Number: GB-TEVA-456363ISR

PATIENT
  Age: 69 Year
  Sex: Female

DRUGS (5)
  1. SIMVASTATIN. [Suspect]
     Active Substance: SIMVASTATIN
     Indication: HYPERCHOLESTEROLAEMIA
     Dosage: IN THE MORNING
     Dates: start: 201209, end: 201311
  2. GARLIC. [Concomitant]
     Active Substance: GARLIC
     Dosage: OCCASIONALLY
  3. SIMVASTATIN. [Suspect]
     Active Substance: SIMVASTATIN
     Indication: HYPERCHOLESTEROLAEMIA
     Dosage: IN THE MORNING
     Dates: start: 20120601, end: 201209
  4. MULTIVITAMIN [Concomitant]
     Active Substance: VITAMINS
     Dosage: OCCASIONALLY
  5. COD LIVER OIL [Concomitant]
     Active Substance: COD LIVER OIL
     Dosage: OCCASIONALLY

REACTIONS (5)
  - Muscle atrophy [Not Recovered/Not Resolved]
  - Palpitations [Not Recovered/Not Resolved]
  - Alopecia [Not Recovered/Not Resolved]
  - Abnormal loss of weight [Not Recovered/Not Resolved]
  - Breast atrophy [Not Recovered/Not Resolved]

NARRATIVE: CASE EVENT DATE: 201210
